FAERS Safety Report 5711328-7 (Version None)
Quarter: 2008Q2

REPORT INFORMATION
  Report Type: 
  Country: None (occurrence: None)
  Receive Date: 20080421
  Receipt Date: 20080411
  Transmission Date: 20081010
  Serious: Yes (Death, Life-Threatening, Disabling, Other)
  Sender: FDA-Public Use
  Company Number: A0710781A

PATIENT
  Age: 61 Year
  Sex: Male
  Weight: 109.1 kg

DRUGS (6)
  1. ADVAIR DISKUS 100/50 [Suspect]
     Indication: DRUG USE FOR UNKNOWN INDICATION
     Route: 055
  2. PHENERGAN [Concomitant]
  3. DIOVAN HCT [Concomitant]
  4. AVODART [Concomitant]
  5. NEXIUM [Concomitant]
  6. SIMVASTATIN [Concomitant]

REACTIONS (2)
  - CARDIAC ARREST [None]
  - SUDDEN DEATH [None]
